FAERS Safety Report 20461820 (Version 1)
Quarter: 2022Q1

REPORT INFORMATION
  Report Type: Spontaneous
  Country: US (occurrence: None)
  Receive Date: 20220211
  Receipt Date: 20220211
  Transmission Date: 20220423
  Serious: Yes (Life-Threatening, Hospitalization, Other)
  Sender: FDA-Public Use
  Company Number: None

PATIENT
  Age: 67 Year
  Sex: Female

DRUGS (1)
  1. CAPECITABINE [Suspect]
     Active Substance: CAPECITABINE
     Indication: Colorectal cancer metastatic
     Dosage: FREQUENCY: TWICE A DAY?
     Route: 048
     Dates: start: 202111, end: 202201

REACTIONS (8)
  - Feeding disorder [None]
  - Nausea [None]
  - Diarrhoea [None]
  - Dehydration [None]
  - Dysstasia [None]
  - Gastrooesophageal reflux disease [None]
  - Oedema [None]
  - Therapy cessation [None]

NARRATIVE: CASE EVENT DATE: 20220128
